FAERS Safety Report 10223133 (Version 1)
Quarter: 2014Q2

REPORT INFORMATION
  Report Type: Spontaneous
  Country: IN (occurrence: IN)
  Receive Date: 20140607
  Receipt Date: 20140607
  Transmission Date: 20141212
  Serious: Yes (Other)
  Sender: FDA-Public Use
  Company Number: PHHY2014IN067549

PATIENT
  Age: 56 Year
  Sex: Female

DRUGS (3)
  1. OLANZAPINE [Suspect]
     Indication: DELUSIONAL DISORDER, UNSPECIFIED TYPE
     Dosage: 10 MG, PER DAY
  2. FLUPENTIXOL DECANOATE [Concomitant]
     Dosage: 40 MG, QHS
     Route: 030
  3. CLONAZEPAM [Concomitant]
     Dosage: 0.5 MG, PER DAY

REACTIONS (7)
  - Restless legs syndrome [Recovering/Resolving]
  - Myalgia [Recovering/Resolving]
  - Pain in extremity [Recovering/Resolving]
  - Limb discomfort [Recovering/Resolving]
  - Sleep disorder [Recovering/Resolving]
  - Middle insomnia [Recovering/Resolving]
  - Insomnia [Recovering/Resolving]
